FAERS Safety Report 5379658-9 (Version None)
Quarter: 2007Q3

REPORT INFORMATION
  Report Type: 
  Country: None (occurrence: None)
  Receive Date: 20070706
  Receipt Date: 20070625
  Transmission Date: 20080115
  Serious: Yes (Other)
  Sender: FDA-Public Use
  Company Number: PHNU2007DE02332

PATIENT

DRUGS (2)
  1. GLEEVEC [Suspect]
     Dosage: MATERNAL DOSE: 400 MG/DAY
     Route: 064
     Dates: end: 20061201
  2. GLEEVEC [Suspect]
     Dosage: MATERNAL DOSE: 200 MG/DAY
     Route: 064
     Dates: start: 20061201

REACTIONS (2)
  - DRUG EXPOSURE DURING PREGNANCY [None]
  - PREMATURE BABY [None]
